FAERS Safety Report 5222851-6 (Version None)
Quarter: 2007Q1

REPORT INFORMATION
  Report Type: 
  Country: None (occurrence: None)
  Receive Date: 20070129
  Receipt Date: 20070119
  Transmission Date: 20070707
  Serious: Yes (Hospitalization)
  Sender: FDA-Public Use
  Company Number: PL-GLAXOSMITHKLINE-B0455881A

PATIENT
  Age: 49 Year
  Sex: Female

DRUGS (1)
  1. AUGMENTIN '125' [Suspect]
     Indication: UPPER RESPIRATORY TRACT INFECTION
     Dosage: 2.4G PER DAY
     Route: 042
     Dates: start: 20051217, end: 20051220

REACTIONS (4)
  - DYSPNOEA [None]
  - EYELID OEDEMA [None]
  - LIP OEDEMA [None]
  - OEDEMA PERIPHERAL [None]
